FAERS Safety Report 17306726 (Version 2)
Quarter: 2020Q1

REPORT INFORMATION
  Report Type: Report from Study
  Country: US (occurrence: US)
  Receive Date: 20200123
  Receipt Date: 20200213
  Transmission Date: 20200409
  Serious: Yes (Other)
  Sender: FDA-Public Use
  Company Number: US-PFIZER INC-2020027063

PATIENT

DRUGS (1)
  1. SODIUM NITROPRUSSIDE. [Suspect]
     Active Substance: SODIUM NITROPRUSSIDE
     Indication: BLOOD PRESSURE MANAGEMENT
     Dosage: UNK (INFUSION)

REACTIONS (1)
  - Acute myocardial infarction [Unknown]
